FAERS Safety Report 23819884 (Version 1)
Quarter: 2024Q2

REPORT INFORMATION
  Report Type: Spontaneous
  Country: DE (occurrence: DE)
  Receive Date: 20240506
  Receipt Date: 20240506
  Transmission Date: 20240716
  Serious: Yes (Other)
  Sender: FDA-Public Use
  Company Number: DE-CHEPLA-2024005445

PATIENT
  Sex: Male

DRUGS (3)
  1. OLANZAPINE [Suspect]
     Active Substance: OLANZAPINE
     Indication: Product used for unknown indication
     Dates: start: 20110323
  2. OLANZAPINE PAMOATE [Suspect]
     Active Substance: OLANZAPINE PAMOATE
     Route: 030
     Dates: start: 20110401, end: 20110405
  3. ABILIFY [Suspect]
     Active Substance: ARIPIPRAZOLE
     Dosage: CONFIRMATION OF COMPULSORY TREATMENT FROM 2011

REACTIONS (2)
  - Lymphoma [Not Recovered/Not Resolved]
  - Prostate cancer [Not Recovered/Not Resolved]
